FAERS Safety Report 8096313-5 (Version None)
Quarter: 2012Q1

REPORT INFORMATION
  Report Type: 
  Country: None (occurrence: None)
  Receive Date: 20120129
  Receipt Date: 20111208
  Transmission Date: 20120608
  Serious: No
  Sender: FDA-Public Use
  Company Number: US-ABBOTT-11P-163-0882233-00

PATIENT
  Sex: Male

DRUGS (1)
  1. HUMIRA [Suspect]
     Indication: RHEUMATOID ARTHRITIS
     Route: 058
     Dates: start: 20110901

REACTIONS (8)
  - NAUSEA [None]
  - INFECTION [None]
  - NASAL CONGESTION [None]
  - HEADACHE [None]
  - FATIGUE [None]
  - RHINORRHOEA [None]
  - CHILLS [None]
  - LACRIMATION INCREASED [None]
